FAERS Safety Report 5337540-7 (Version None)
Quarter: 2007Q2

REPORT INFORMATION
  Report Type: 
  Country: None (occurrence: None)
  Receive Date: 20070309
  Receipt Date: 20060808
  Transmission Date: 20071010
  Serious: Yes (Hospitalization, Other)
  Sender: FDA-Public Use
  Company Number: US200608001575

PATIENT
  Age: 61 Year
  Sex: Female

DRUGS (4)
  1. GEMZAR [Suspect]
     Indication: PANCREATIC CARCINOMA METASTATIC
     Dosage: SEE IMAGE
     Route: 042
     Dates: start: 20060731
  2. GEMZAR [Suspect]
     Indication: PANCREATIC CARCINOMA METASTATIC
     Dosage: SEE IMAGE
     Route: 042
     Dates: start: 20060807
  3. TAXOL [Concomitant]
  4. TAXOTERE [Concomitant]

REACTIONS (2)
  - NEUTROPENIA [None]
  - PYREXIA [None]
